FAERS Safety Report 8349209-5 (Version None)
Quarter: 2012Q2

REPORT INFORMATION
  Report Type: 
  Country: None (occurrence: None)
  Receive Date: 20120510
  Receipt Date: 20120502
  Transmission Date: 20120825
  Serious: Yes (Other)
  Sender: FDA-Public Use
  Company Number: PHEH2012US009283

PATIENT

DRUGS (1)
  1. ZOMETA [Suspect]

REACTIONS (4)
  - TOOTH DISORDER [None]
  - MULTIPLE MYELOMA [None]
  - CONCOMITANT DISEASE PROGRESSION [None]
  - JAW DISORDER [None]
